FAERS Safety Report 8856478 (Version 1)
Quarter: 2012Q4

REPORT INFORMATION
  Report Type: Spontaneous
  Country: IT (occurrence: None)
  Receive Date: 20121019
  Receipt Date: 20121019
  Transmission Date: 20130627
  Serious: Yes (Hospitalization)
  Sender: FDA-Public Use
  Company Number: 2012AP003305

PATIENT
  Age: 25 Year
  Sex: Male

DRUGS (1)
  1. LEVOFLOXACIN (LEVOFLOXACIN) [Suspect]
     Indication: ACUTE CYSTITIS
     Route: 048
     Dates: start: 20120920, end: 20120920

REACTIONS (3)
  - Hypersensitivity [None]
  - Dysphonia [None]
  - Laryngeal stenosis [None]
